FAERS Safety Report 4414766-8 (Version None)
Quarter: 2004Q3

REPORT INFORMATION
  Report Type: 
  Country: None (occurrence: None)
  Receive Date: 20040804
  Receipt Date: 20030904
  Transmission Date: 20050211
  Serious: No
  Sender: FDA-Public Use
  Company Number: US-BRISTOL-MYERS SQUIBB COMPANY-12373809

PATIENT
  Age: 71 Year
  Sex: Female
  Weight: 53 kg

DRUGS (5)
  1. GLUCOVANCE [Suspect]
     Indication: DIABETES MELLITUS
     Dosage: 1 DOSAGE FORM = 2.5/500MG
     Route: 048
     Dates: start: 20030903
  2. ENALAPRIL MALEATE [Concomitant]
  3. ZOCOR [Concomitant]
  4. CIMETIDINE [Concomitant]
  5. MULTIVITAMIN [Concomitant]

REACTIONS (4)
  - DIARRHOEA [None]
  - HYPOGLYCAEMIA [None]
  - NAUSEA [None]
  - VOMITING [None]
